FAERS Safety Report 10169124 (Version 1)
Quarter: 2014Q2

REPORT INFORMATION
  Report Type: Spontaneous
  Country: US (occurrence: US)
  Receive Date: 20140513
  Receipt Date: 20140513
  Transmission Date: 20141212
  Serious: No
  Sender: FDA-Public Use
  Company Number: US-TARO-2013P1005504

PATIENT
  Age: 19 Month
  Sex: Male
  Weight: 12.7 kg

DRUGS (1)
  1. CETIRIZINE HCL CHILDREN ORAL SOLUTION ALLERGY 1MG/ML (SUGARFREE GRAPE) [Suspect]
     Route: 048
     Dates: start: 20130404, end: 20130502

REACTIONS (5)
  - Tongue discolouration [Recovered/Resolved]
  - Tongue coated [Recovered/Resolved]
  - Diarrhoea [Recovered/Resolved]
  - Decreased appetite [Recovered/Resolved]
  - Drug administered to patient of inappropriate age [Unknown]
